FAERS Safety Report 8012390-1 (Version None)
Quarter: 2011Q4

REPORT INFORMATION
  Report Type: 
  Country: None (occurrence: None)
  Receive Date: 20111228
  Receipt Date: 20111219
  Transmission Date: 20120403
  Serious: Yes (Hospitalization, Other)
  Sender: FDA-Public Use
  Company Number: DE-ASTRAZENECA-2011SE76854

PATIENT
  Age: 31 Year
  Sex: Female
  Weight: 69 kg

DRUGS (11)
  1. LEVOTHYROXINE SODIUM [Concomitant]
     Dosage: SSW 6-12: 150?G
  2. SEROQUEL [Suspect]
     Dosage: WEEK 14-20: 100 MG DAILY
     Route: 048
  3. FOL PLUS [Concomitant]
     Indication: PROPHYLAXIS OF NEURAL TUBE DEFECT
     Dosage: 0.4 MG/D
     Dates: start: 20100915, end: 20110203
  4. SEROQUEL [Suspect]
     Dosage: WEEK 14-20: 100 MG DAILY
     Route: 048
  5. SEROQUEL [Suspect]
     Dosage: WEEK 21-32: SLOW REDUCTION TO 25 MG DAILY
     Route: 048
  6. LEVOTHYROXINE SODIUM [Concomitant]
     Dosage: WK 14-36: 175-225 ?G/D
     Dates: end: 20110716
  7. LEVOTHYROXINE SODIUM [Concomitant]
     Indication: THYROIDECTOMY
     Dosage: 225 ?G/D/ SSW 0-6: 100?G
     Dates: start: 20101104
  8. LEVOTHYROXINE SODIUM [Concomitant]
     Dosage: WK 12-14: 200?G
  9. SEROQUEL [Suspect]
     Indication: BIPOLAR DISORDER
     Dosage: WEEK 0-13: 200 MG DAILY
     Route: 048
  10. SEROQUEL [Suspect]
     Indication: BIPOLAR I DISORDER
     Dosage: WEEK 0-13: 200 MG DAILY
     Route: 048
  11. SEROQUEL [Suspect]
     Dosage: WEEK 21-32: SLOW REDUCTION TO 25 MG DAILY
     Route: 048

REACTIONS (4)
  - MATERNAL EXPOSURE DURING PREGNANCY [None]
  - VULVOVAGINITIS [None]
  - GESTATIONAL DIABETES [None]
  - PLACENTA PRAEVIA HAEMORRHAGE [None]
